FAERS Safety Report 16909044 (Version 1)
Quarter: 2019Q4

REPORT INFORMATION
  Report Type: Report from Study
  Country: KR (occurrence: KR)
  Receive Date: 20191011
  Receipt Date: 20191011
  Transmission Date: 20200122
  Serious: No
  Sender: FDA-Public Use
  Company Number: KR-B.I. PHARMACEUTICALS,INC./RIDGEFIELD-2019-BI-105868

PATIENT
  Age: 53 Year
  Sex: Male
  Weight: 74 kg

DRUGS (5)
  1. LANTUS [Concomitant]
     Active Substance: INSULIN GLARGINE
     Indication: TYPE 2 DIABETES MELLITUS
     Dosage: FORMULATION: SOLUTION
     Route: 065
     Dates: start: 20181126, end: 20190901
  2. VESSEL DUE F [Concomitant]
     Active Substance: SULODEXIDE
     Indication: ANGIOPATHY
     Route: 048
     Dates: start: 20120919
  3. JARDIANCE [Suspect]
     Active Substance: EMPAGLIFLOZIN
     Indication: TYPE 2 DIABETES MELLITUS
     Route: 048
     Dates: start: 20190902, end: 20190909
  4. LANTUS [Concomitant]
     Active Substance: INSULIN GLARGINE
     Route: 058
     Dates: start: 20190902
  5. DUKARB [Concomitant]
     Indication: HYPERTENSION
     Dosage: FORM STRENGTH: 30/5MG
     Route: 048
     Dates: start: 20190902

REACTIONS (2)
  - Pollakiuria [Recovered/Resolved]
  - Headache [Recovered/Resolved]

NARRATIVE: CASE EVENT DATE: 20190903
